FAERS Safety Report 21384688 (Version 1)
Quarter: 2022Q3

REPORT INFORMATION
  Report Type: Other
  Country: DE (occurrence: DE)
  Receive Date: 20220928
  Receipt Date: 20220928
  Transmission Date: 20221027
  Serious: Yes (Other)
  Sender: FDA-Public Use
  Company Number: DE-MACLEODS PHARMACEUTICALS US LTD-MAC2022037386

PATIENT

DRUGS (9)
  1. CELECOXIB [Interacting]
     Active Substance: CELECOXIB
     Indication: Ankylosing spondylitis
     Dosage: UNK UNK, PRN,IF NEEDED, 2 TO 3 TABLETS OF CELECOXIB OVER 2 DAYS IN A MONTH
     Route: 065
  2. CELECOXIB [Interacting]
     Active Substance: CELECOXIB
     Dosage: 200 MILLIGRAM, QD (ONE TABLET OF CELECOXIB DAILY FOR ABOUT 5 DAYS)
     Route: 065
  3. CANDESARTAN [Suspect]
     Active Substance: CANDESARTAN
     Indication: Coronary artery disease
     Dosage: UNK UNK, QD (DAILY INTAKE)
     Route: 065
  4. DILTIAZEM [Interacting]
     Active Substance: DILTIAZEM
     Indication: Coronary artery disease
     Dosage: UNK, QD (DAILY INTAKE)
     Route: 065
  5. MOLSIDOMINE [Interacting]
     Active Substance: MOLSIDOMINE
     Indication: Coronary artery disease
     Dosage: UNK UNK, QD (DAILY INTAKE)
     Route: 065
  6. RANEXA [Interacting]
     Active Substance: RANOLAZINE
     Indication: Coronary artery disease
     Dosage: UNK UNK, QD (DAILY INTAKE)
     Route: 065
  7. ROSUVASTATIN [Concomitant]
     Active Substance: ROSUVASTATIN
     Indication: Coronary artery disease
     Dosage: UNK UNK, QD (DAILY INTAKE)
     Route: 065
  8. XARELTO [Concomitant]
     Active Substance: RIVAROXABAN
     Indication: Coronary artery disease
     Dosage: UNK UNK, QD (DAILY INTAKE)
     Route: 065
  9. ASPIRIN [Concomitant]
     Active Substance: ASPIRIN
     Indication: Coronary artery disease
     Dosage: UNK, QD (DAILY INTAKE)
     Route: 065

REACTIONS (3)
  - Angina pectoris [Recovered/Resolved]
  - Chest pain [Recovered/Resolved]
  - Drug interaction [Unknown]
